FAERS Safety Report 24078124 (Version 1)
Quarter: 2024Q3

REPORT INFORMATION
  Report Type: Spontaneous
  Country: GB (occurrence: GB)
  Receive Date: 20240711
  Receipt Date: 20240711
  Transmission Date: 20241017
  Serious: Yes (Other)
  Sender: BOEHRINGER INGELHEIM
  Company Number: GB-BoehringerIngelheim-2024-BI-038674

PATIENT
  Age: 17 Year
  Sex: Female
  Weight: 47 kg

DRUGS (3)
  1. CLONIDINE [Suspect]
     Active Substance: CLONIDINE
     Indication: Complex regional pain syndrome
     Dates: start: 20230720
  2. PREGABALIN [Concomitant]
     Active Substance: PREGABALIN
     Indication: Complex regional pain syndrome
     Dates: start: 20231101
  3. ABATACEPT [Concomitant]
     Active Substance: ABATACEPT
     Indication: Juvenile idiopathic arthritis
     Dates: start: 20230601

REACTIONS (5)
  - Tic [Not Recovered/Not Resolved]
  - Hallucination [Not Recovered/Not Resolved]
  - Psychogenic seizure [Recovering/Resolving]
  - Petit mal epilepsy [Not Recovered/Not Resolved]
  - Depression [Recovering/Resolving]

NARRATIVE: CASE EVENT DATE: 20230725
